FAERS Safety Report 23454823 (Version 1)
Quarter: 2024Q1

REPORT INFORMATION
  Report Type: Spontaneous
  Country: US (occurrence: US)
  Receive Date: 20240130
  Receipt Date: 20240130
  Transmission Date: 20240410
  Serious: No
  Sender: FDA-Public Use
  Company Number: US-STRIDES ARCOLAB LIMITED-2023SP006323

PATIENT

DRUGS (1)
  1. METHOTREXATE [Suspect]
     Active Substance: METHOTREXATE
     Indication: Retinopathy proliferative
     Dosage: UNK (200 MICROG/0.05ML, INJECTION EVERY 2 WEEKS)

REACTIONS (2)
  - Corneal abrasion [Recovered/Resolved]
  - Off label use [Unknown]
